FAERS Safety Report 7193756-9 (Version None)
Quarter: 2010Q4

REPORT INFORMATION
  Report Type: 
  Country: None (occurrence: None)
  Receive Date: 20101223
  Receipt Date: 20100910
  Transmission Date: 20110411
  Serious: No
  Sender: FDA-Public Use
  Company Number: US-AMGEN-KDL437511

PATIENT

DRUGS (9)
  1. ENBREL [Suspect]
     Indication: PRODUCT USED FOR UNKNOWN INDICATION
     Dosage: 50 MG, QWK
     Route: 058
  2. CARVEDILOL [Concomitant]
     Dosage: 25 MG, UNK
  3. AMLODIPINE BESYLATE [Concomitant]
     Dosage: 5 MG, UNK
  4. OMEPRAZOLE [Concomitant]
     Dosage: 20 MG, UNK
  5. ALLOPURINOL [Concomitant]
     Dosage: 100 MG, UNK
  6. CALCIUM/VITAMIN D [Concomitant]
     Dosage: UNK UNK, UNK
  7. MELATONIN [Concomitant]
     Dosage: 1 MG, UNK
  8. LOVAZA [Concomitant]
     Dosage: UNK UNK, UNK
  9. FISH OIL [Concomitant]

REACTIONS (3)
  - FATIGUE [None]
  - INJECTION SITE PAIN [None]
  - RASH [None]
